FAERS Safety Report 20474468 (Version 1)
Quarter: 2022Q1

REPORT INFORMATION
  Report Type: Spontaneous
  Country: US (occurrence: None)
  Receive Date: 20220214
  Receipt Date: 20220214
  Transmission Date: 20220423
  Serious: Yes (Death)
  Sender: FDA-Public Use
  Company Number: None

PATIENT
  Age: 83 Year
  Sex: Female
  Weight: 61.23 kg

DRUGS (7)
  1. IBRANCE [Suspect]
     Active Substance: PALBOCICLIB
  2. POTASSIUM [Concomitant]
     Active Substance: POTASSIUM
  3. LISINOPRIL [Concomitant]
     Active Substance: LISINOPRIL
  4. FUROSEMIDE [Concomitant]
     Active Substance: FUROSEMIDE
  5. XARELTO [Concomitant]
     Active Substance: RIVAROXABAN
  6. LETROZOLE [Concomitant]
     Active Substance: LETROZOLE
  7. VITAMIN C [Concomitant]
     Active Substance: ASCORBIC ACID

REACTIONS (1)
  - Death [None]

NARRATIVE: CASE EVENT DATE: 20220213
